FAERS Safety Report 10487214 (Version 1)
Quarter: 2014Q4

REPORT INFORMATION
  Report Type: Spontaneous
  Country: BR (occurrence: BR)
  Receive Date: 20141001
  Receipt Date: 20141001
  Transmission Date: 20150528
  Serious: Yes (Death, Hospitalization, Other)
  Sender: FDA-Public Use
  Company Number: BR-PFIZER INC-2014269119

PATIENT
  Age: 90 Year
  Sex: Female

DRUGS (1)
  1. AROMASIN [Suspect]
     Active Substance: EXEMESTANE
     Indication: BREAST CANCER
     Dosage: 25 MG, 1X/DAY
     Route: 048
     Dates: start: 20130903

REACTIONS (4)
  - Dyspnoea [Unknown]
  - Death [Fatal]
  - Blood pressure fluctuation [Unknown]
  - Urticaria [Unknown]

NARRATIVE: CASE EVENT DATE: 20140224
